FAERS Safety Report 11521287 (Version 1)
Quarter: 2015Q3

REPORT INFORMATION
  Report Type: Spontaneous
  Country: US (occurrence: US)
  Receive Date: 20150918
  Receipt Date: 20150918
  Transmission Date: 20151125
  Serious: No
  Sender: FDA-Public Use
  Company Number: US-ROCHE-701348

PATIENT
  Age: 58 Year
  Sex: Female
  Weight: 77.1 kg

DRUGS (2)
  1. RIBASPHERE [Suspect]
     Active Substance: RIBAVIRIN
     Indication: HEPATITIS C
     Dosage: DIVIDED DOSES;3 IN MORNING, 2 IN EVENING
     Route: 048
     Dates: start: 20100417, end: 20100614
  2. PEGASYS [Suspect]
     Active Substance: PEGINTERFERON ALFA-2A
     Indication: HEPATITIS C
     Route: 058
     Dates: start: 20100417, end: 20100614

REACTIONS (2)
  - Formication [Not Recovered/Not Resolved]
  - Pruritus generalised [Not Recovered/Not Resolved]

NARRATIVE: CASE EVENT DATE: 20100427
